FAERS Safety Report 8789210 (Version 1)
Quarter: 2012Q4

REPORT INFORMATION
  Report Type: 
  Country: FR (occurrence: None)
  Receive Date: 20120905
  Receipt Date: 20120905
  Transmission Date: 20130627
  Serious: Yes (Life-Threatening, Hospitalization, Other)
  Sender: FDA-Public Use
  Company Number: 2012MA010364

PATIENT
  Age: 55 Year
  Sex: Female

DRUGS (1)
  1. DILTIAZEM HYDROCHLORIDE [Suspect]
     Indication: SUICIDE ATTEMPT

REACTIONS (5)
  - Cardiogenic shock [None]
  - Cardiovascular disorder [None]
  - Haemodialysis [None]
  - Metabolic acidosis [None]
  - Multi-organ failure [None]
